FAERS Safety Report 20146878 (Version 1)
Quarter: 2021Q4

REPORT INFORMATION
  Report Type: Spontaneous
  Country: JP (occurrence: JP)
  Receive Date: 20211203
  Receipt Date: 20211203
  Transmission Date: 20220303
  Serious: Yes (Other)
  Sender: FDA-Public Use
  Company Number: JP-ALLERGAN-2140611US

PATIENT
  Sex: Female

DRUGS (2)
  1. ASENAPINE MALEATE [Suspect]
     Active Substance: ASENAPINE MALEATE
     Indication: Epilepsy
     Dosage: TWICE DAILY AT A DOSE OF 20MG/DAY
     Route: 060
  2. ASENAPINE MALEATE [Suspect]
     Active Substance: ASENAPINE MALEATE
     Indication: Intellectual disability

REACTIONS (5)
  - Loss of consciousness [Unknown]
  - Seizure [Unknown]
  - Off label use [Unknown]
  - Restlessness [Unknown]
  - Irritability [Unknown]
